FAERS Safety Report 4283827-9 (Version None)
Quarter: 2004Q1

REPORT INFORMATION
  Report Type: 
  Country: None (occurrence: None)
  Receive Date: 20040130
  Receipt Date: 20040119
  Transmission Date: 20041129
  Serious: Yes (Other)
  Sender: FDA-Public Use
  Company Number: US-JNJFOC-20031102548

PATIENT
  Age: 73 Year
  Sex: Male
  Weight: 95.2554 kg

DRUGS (6)
  1. REMICADE [Suspect]
     Indication: RHEUMATOID ARTHRITIS
     Dosage: SEE IMAGE INTRAVENOUS
     Route: 042
     Dates: start: 20020429
  2. REMICADE [Suspect]
     Indication: RHEUMATOID ARTHRITIS
     Dosage: SEE IMAGE INTRAVENOUS
     Route: 042
     Dates: start: 20030301
  3. REMICADE [Suspect]
     Indication: RHEUMATOID ARTHRITIS
     Dosage: SEE IMAGE INTRAVENOUS
     Route: 042
     Dates: start: 20030515
  4. REMICADE [Suspect]
     Indication: RHEUMATOID ARTHRITIS
     Dosage: SEE IMAGE INTRAVENOUS
     Route: 042
     Dates: start: 20030707
  5. REMICADE [Suspect]
     Indication: RHEUMATOID ARTHRITIS
     Dosage: SEE IMAGE INTRAVENOUS
     Route: 042
     Dates: start: 20030903
  6. METHOTREXATE SODIUM [Concomitant]

REACTIONS (9)
  - CHILLS [None]
  - COMA [None]
  - DYSARTHRIA [None]
  - NAUSEA [None]
  - PALLOR [None]
  - PRURITUS [None]
  - SLUGGISHNESS [None]
  - TREMOR [None]
  - VOMITING [None]
